FAERS Safety Report 17549903 (Version 1)
Quarter: 2020Q1

REPORT INFORMATION
  Report Type: Spontaneous
  Country: US (occurrence: US)
  Receive Date: 20200308
  Receipt Date: 20200308
  Transmission Date: 20200409
  Serious: Yes (Hospitalization)
  Sender: FDA-Public Use
  Company Number: None

PATIENT
  Age: 22 Year
  Sex: Male
  Weight: 81.9 kg

DRUGS (3)
  1. IFOSFAMIDE. [Suspect]
     Active Substance: IFOSFAMIDE
     Dates: end: 20200223
  2. TAXOL [Suspect]
     Active Substance: PACLITAXEL
     Dates: end: 20200221
  3. G-CSF (FILGRASTIM, AMGEN) [Suspect]
     Active Substance: FILGRASTIM
     Dates: end: 20200224

REACTIONS (2)
  - Pneumothorax [None]
  - Human chorionic gonadotropin increased [None]

NARRATIVE: CASE EVENT DATE: 20200225
